FAERS Safety Report 19569789 (Version 2)
Quarter: 2021Q3

REPORT INFORMATION
  Report Type: Report from Study
  Country: AU (occurrence: AU)
  Receive Date: 20210716
  Receipt Date: 20210728
  Transmission Date: 20211014
  Serious: Yes (Other)
  Sender: FDA-Public Use
  Company Number: AU-PFIZER INC-2021832026

PATIENT
  Weight: 18.9 kg

DRUGS (8)
  1. PROMETHAZINE [Concomitant]
     Active Substance: PROMETHAZINE HYDROCHLORIDE
     Indication: PREMEDICATION
     Dosage: 9.4 MG, AS NEEDED
     Dates: start: 20210627, end: 20210630
  2. PARACETAMOL [Concomitant]
     Active Substance: ACETAMINOPHEN
     Indication: PAIN
     Dosage: 290 MG, AS NEEDED
     Dates: start: 20210626
  3. GEMTUZUMAB OZOGAMICIN [Suspect]
     Active Substance: GEMTUZUMAB OZOGAMICIN
     Indication: ACUTE MYELOID LEUKAEMIA
     Dosage: 4.6 MG/M2, CYCLIC (DRUG DOSAGE INTERVAL: 10 DAYS)
     Route: 042
     Dates: start: 20210627, end: 20210705
  4. MITOXANTRONE HCL [Suspect]
     Active Substance: MITOXANTRONE HYDROCHLORIDE
     Indication: ACUTE MYELOID LEUKAEMIA
     Dosage: 12 MG/M2, 1X/DAY
     Route: 042
     Dates: start: 20210624, end: 20210627
  5. CYTARABINE. [Suspect]
     Active Substance: CYTARABINE
     Indication: ACUTE MYELOID LEUKAEMIA
     Dosage: 48 MG, CYCLIC (DRUG DOSAGE INTERVAL: 10 DAYS)
     Route: 039
     Dates: start: 20210623, end: 20210705
  6. METHYLPREDNISOLONE SODIUM SUCCINATE. [Concomitant]
     Active Substance: METHYLPREDNISOLONE SODIUM SUCCINATE
     Indication: PREMEDICATION
     Dosage: 19.1 MG, AS NEEDED
     Dates: start: 20210630, end: 20210630
  7. CYCLIZINE [Concomitant]
     Active Substance: CYCLIZINE
     Indication: NAUSEA
     Dosage: 18.5 MG, AS NEEDED
     Dates: start: 20210629
  8. GLUCOSE + SODIUM CHLORIDE [Concomitant]
     Active Substance: DEXTROSE\SODIUM CHLORIDE
     Indication: FLUID RETENTION
     Dosage: 9.5, UNIT: OTHERS, FREQUENCY: OTHERS
     Dates: start: 20210626

REACTIONS (1)
  - Sinus bradycardia [Not Recovered/Not Resolved]

NARRATIVE: CASE EVENT DATE: 20210628
